FAERS Safety Report 5621602-0 (Version None)
Quarter: 2008Q1

REPORT INFORMATION
  Report Type: 
  Country: None (occurrence: None)
  Receive Date: 20080211
  Receipt Date: 20080205
  Transmission Date: 20080703
  Serious: Yes (Hospitalization, Other)
  Sender: FDA-Public Use
  Company Number: PHEH2008US00445

PATIENT
  Age: 78 Year
  Sex: Female

DRUGS (2)
  1. AREDIA [Suspect]
  2. REVLIMID [Suspect]
     Indication: MULTIPLE MYELOMA
     Dosage: 25MG QD
     Dates: start: 20071029, end: 20071120

REACTIONS (8)
  - BLOOD BILIRUBIN INCREASED [None]
  - BLOOD CREATININE INCREASED [None]
  - BLOOD LACTATE DEHYDROGENASE INCREASED [None]
  - HAEMOGLOBIN DECREASED [None]
  - PLASMAPHERESIS [None]
  - PLATELET COUNT DECREASED [None]
  - RENAL DISORDER [None]
  - THROMBOTIC THROMBOCYTOPENIC PURPURA [None]
